FAERS Safety Report 23935942 (Version 5)
Quarter: 2024Q3

REPORT INFORMATION
  Report Type: Report from Study
  Country: KR (occurrence: KR)
  Receive Date: 20240604
  Receipt Date: 20240923
  Transmission Date: 20241017
  Serious: Yes (Hospitalization, Other)
  Sender: ROCHE
  Company Number: KR-ROCHE-3545263

PATIENT
  Age: 70 Year
  Sex: Female
  Weight: 61 kg

DRUGS (5)
  1. ALECTINIB [Suspect]
     Active Substance: ALECTINIB
     Indication: Renal cancer
     Route: 048
     Dates: start: 20240326, end: 20240701
  2. ALECTINIB [Suspect]
     Active Substance: ALECTINIB
     Indication: Renal cell carcinoma
     Dosage: SUBSEQUENT DOSE RECEIVED ON 23/APR/2024
     Route: 048
     Dates: start: 20240326, end: 20240429
  3. ALECTINIB [Suspect]
     Active Substance: ALECTINIB
     Route: 048
     Dates: start: 20240423, end: 20240429
  4. ALECTINIB [Suspect]
     Active Substance: ALECTINIB
     Dosage: START AND END DATE OF MOST RECENT DOSE RECEIVED 21/MAY/2024
     Route: 048
     Dates: start: 20240430, end: 20240520
  5. ALECTINIB [Suspect]
     Active Substance: ALECTINIB
     Route: 048
     Dates: start: 20240521, end: 20240529

REACTIONS (20)
  - Angioedema [Recovered/Resolved]
  - Influenza [Recovered/Resolved]
  - Pneumonitis [Not Recovered/Not Resolved]
  - Rash [Recovered/Resolved]
  - Stomatitis [Recovered/Resolved]
  - Dyspepsia [Not Recovered/Not Resolved]
  - Generalised oedema [Recovered/Resolved]
  - Dyspnoea [Not Recovered/Not Resolved]
  - Anaemia [Not Recovered/Not Resolved]
  - Nausea [Recovered/Resolved]
  - Vomiting [Recovered/Resolved]
  - Hypertension [Recovered/Resolved]
  - Diabetes mellitus [Recovered/Resolved]
  - Constipation [Not Recovered/Not Resolved]
  - Hyperkalaemia [Recovered/Resolved]
  - Palpitations [Recovered/Resolved]
  - Chest discomfort [Not Recovered/Not Resolved]
  - Pleural effusion [Not Recovered/Not Resolved]
  - Aspartate aminotransferase increased [Recovered/Resolved]
  - Alanine aminotransferase increased [Recovered/Resolved]

NARRATIVE: CASE EVENT DATE: 20240405
